FAERS Safety Report 4901831-1 (Version None)
Quarter: 2006Q1

REPORT INFORMATION
  Report Type: 
  Country: None (occurrence: None)
  Receive Date: 20060203
  Receipt Date: 20060203
  Transmission Date: 20060701
  Serious: Yes (Death)
  Sender: FDA-Public Use
  Company Number: None

PATIENT
  Age: 50 Year
  Sex: Male
  Weight: 58.9676 kg

DRUGS (2)
  1. CELEXA [Suspect]
     Indication: ANXIETY
     Dosage: INCREASING OVER ONE MONTH DAILY PO
     Route: 048
     Dates: start: 20051201, end: 20051231
  2. CELEXA [Suspect]
     Indication: DEPRESSION
     Dosage: INCREASING OVER ONE MONTH DAILY PO
     Route: 048
     Dates: start: 20051201, end: 20051231

REACTIONS (1)
  - DEATH [None]
